FAERS Safety Report 4798155-2 (Version None)
Quarter: 2005Q4

REPORT INFORMATION
  Report Type: 
  Country: None (occurrence: None)
  Receive Date: 20051011
  Receipt Date: 20050929
  Transmission Date: 20060501
  Serious: Yes (Other)
  Sender: FDA-Public Use
  Company Number: 2005122256

PATIENT
  Age: 64 Year
  Sex: Female

DRUGS (14)
  1. NITROSTAT [Suspect]
     Indication: ILL-DEFINED DISORDER
     Dosage: SUBLINGUAL
     Route: 060
  2. PLAVIX [Concomitant]
  3. SYNTHROID [Concomitant]
  4. DRISDOL [Concomitant]
  5. FLOVENT [Concomitant]
  6. LOSEC (OMEPRAZOLE) [Concomitant]
  7. SALBUTAMOL (SALBUTAMOL) [Concomitant]
  8. CALCIUM (CALCIUM) [Concomitant]
  9. VITAMIN D [Concomitant]
  10. ACETAMINOPHEN [Concomitant]
  11. ALTACE [Concomitant]
  12. NITRO-DUR [Concomitant]
  13. BUSPIRONE HCL [Concomitant]
  14. ESTRADERM [Concomitant]

REACTIONS (4)
  - CAROTID ARTERY OCCLUSION [None]
  - DRUG INEFFECTIVE [None]
  - GASTRIC OPERATION [None]
  - PHARMACEUTICAL PRODUCT COMPLAINT [None]
